FAERS Safety Report 19036106 (Version 1)
Quarter: 2021Q1

REPORT INFORMATION
  Report Type: Spontaneous
  Country: US (occurrence: US)
  Receive Date: 20210321
  Receipt Date: 20210321
  Transmission Date: 20210420
  Serious: Yes (Hospitalization)
  Sender: FDA-Public Use
  Company Number: US-TEVA-2021-US-1890880

PATIENT
  Age: 72 Year
  Sex: Female

DRUGS (1)
  1. CLONAZEPAM TEVA [Suspect]
     Active Substance: CLONAZEPAM
     Indication: PANIC ATTACK
     Dosage: STARTED APPROXIMATELY 10 YEARS
     Route: 065

REACTIONS (3)
  - Loss of consciousness [Recovered/Resolved]
  - Withdrawal syndrome [Unknown]
  - Syncope [Recovered/Resolved]
